FAERS Safety Report 9148585 (Version 1)
Quarter: 2013Q1

REPORT INFORMATION
  Report Type: Spontaneous
  Country: US (occurrence: None)
  Receive Date: 20130228
  Receipt Date: 20130228
  Transmission Date: 20140127
  Serious: Yes (Other)
  Sender: FDA-Public Use
  Company Number: None

PATIENT
  Sex: Male
  Weight: 16.78 kg

DRUGS (1)
  1. RISPERIDONE [Suspect]
     Dosage: .25MG 1/2 PILL TWICE/DAY PO
     Route: 048

REACTIONS (4)
  - Dyskinesia [None]
  - Muscle twitching [None]
  - Paranoia [None]
  - Pain [None]
